FAERS Safety Report 18689966 (Version 1)
Quarter: 2020Q4

REPORT INFORMATION
  Report Type: Spontaneous
  Country: DE (occurrence: DE)
  Receive Date: 20201231
  Receipt Date: 20201231
  Transmission Date: 20210114
  Serious: No
  Sender: FDA-Public Use
  Company Number: DE-TEVA-2019-DE-1158286

PATIENT
  Sex: Female

DRUGS (2)
  1. ISOTRETINOIN-RATIOPHARM 20MG WEICHKAPSELN [Suspect]
     Active Substance: ISOTRETINOIN
     Indication: FOLLICULITIS
     Dosage: 20 MILLIGRAM DAILY; THE SUSPECT MEDICATION WAS TAKEN BY THE FATHER( BEFORE AND DURING CONCEPTION)
     Route: 065
     Dates: start: 2015
  2. PARACETAMOL [Concomitant]
     Active Substance: ACETAMINOPHEN
     Route: 048

REACTIONS (2)
  - Vitiligo [Not Recovered/Not Resolved]
  - Paternal exposure timing unspecified [Unknown]
